FAERS Safety Report 4765470-8 (Version None)
Quarter: 2005Q3

REPORT INFORMATION
  Report Type: 
  Country: None (occurrence: None)
  Receive Date: 20050908
  Receipt Date: 20050908
  Transmission Date: 20060218
  Serious: Yes (Hospitalization)
  Sender: FDA-Public Use
  Company Number: None

PATIENT
  Age: 75 Year
  Sex: Female
  Weight: 70 kg

DRUGS (2)
  1. ALEVE [Suspect]
     Indication: ARTHRALGIA
     Dosage: 1 PO Q 8 HRS
     Route: 048
  2. ALEVE [Suspect]
     Indication: OSTEOARTHRITIS
     Dosage: 1 PO Q 8 HRS
     Route: 048

REACTIONS (7)
  - FAECES DISCOLOURED [None]
  - GASTRIC ULCER [None]
  - HAEMATEMESIS [None]
  - NAUSEA [None]
  - OCCULT BLOOD POSITIVE [None]
  - VOMITING [None]
  - WEIGHT DECREASED [None]
